FAERS Safety Report 13964201 (Version 3)
Quarter: 2017Q4

REPORT INFORMATION
  Report Type: Spontaneous
  Country: US (occurrence: US)
  Receive Date: 20170913
  Receipt Date: 20171023
  Transmission Date: 20180320
  Serious: Yes (Hospitalization, Other)
  Sender: FDA-Public Use
  Company Number: US-009507513-1709USA006158

PATIENT
  Sex: Female
  Weight: 67.12 kg

DRUGS (1)
  1. JANUVIA [Suspect]
     Active Substance: SITAGLIPTIN PHOSPHATE
     Indication: TYPE 2 DIABETES MELLITUS
     Dosage: 100 MG, UNK
     Route: 048
     Dates: start: 201305, end: 20170111

REACTIONS (9)
  - Glomerular filtration rate decreased [Unknown]
  - Pancreatic calcification [Recovered/Resolved]
  - Dehydration [Recovered/Resolved]
  - Sinus tachycardia [Unknown]
  - Dehydration [Unknown]
  - Pancreatitis chronic [Recovered/Resolved]
  - Pancreatitis [Recovered/Resolved]
  - Weight decreased [Unknown]
  - Drug ineffective [Unknown]

NARRATIVE: CASE EVENT DATE: 2013
